FAERS Safety Report 25727066 (Version 1)
Quarter: 2025Q3

REPORT INFORMATION
  Report Type: Spontaneous
  Country: US (occurrence: None)
  Receive Date: 20250825
  Receipt Date: 20250825
  Transmission Date: 20251021
  Serious: Yes (Hospitalization)
  Sender: FDA-CTU
  Company Number: None

PATIENT

DRUGS (3)
  1. CEFTRIAXONE [Suspect]
     Active Substance: CEFTRIAXONE
  2. VANCOMYCIN [Suspect]
     Active Substance: VANCOMYCIN
  3. ANCEF [Suspect]
     Active Substance: CEFAZOLIN SODIUM

REACTIONS (6)
  - Drug hypersensitivity [None]
  - Dyspnoea [None]
  - Flushing [None]
  - Erythema [None]
  - Pain [None]
  - Therapy non-responder [None]

NARRATIVE: CASE EVENT DATE: 20220901
